FAERS Safety Report 21736032 (Version 1)
Quarter: 2022Q4

REPORT INFORMATION
  Report Type: Spontaneous
  Country: US (occurrence: US)
  Receive Date: 20221215
  Receipt Date: 20221215
  Transmission Date: 20230112
  Serious: No
  Sender: FDA-Public Use
  Company Number: US-NOVOPROD-884707

PATIENT
  Sex: Male

DRUGS (1)
  1. LEVEMIR [Suspect]
     Active Substance: INSULIN DETEMIR
     Indication: Diabetes mellitus
     Dosage: 25 UNITS ONCE A DAY (INSTEAD OF 6 TIMES A DAY)
     Route: 058

REACTIONS (4)
  - Feeling hot [Unknown]
  - Feeling abnormal [Unknown]
  - Intentional product use issue [Unknown]
  - Inability to afford medication [Unknown]
